FAERS Safety Report 4558058-5 (Version None)
Quarter: 2005Q1

REPORT INFORMATION
  Report Type: 
  Country: None (occurrence: None)
  Receive Date: 20050121
  Receipt Date: 20040723
  Transmission Date: 20050727
  Serious: No
  Sender: FDA-Public Use
  Company Number: US-BRISTOL-MYERS SQUIBB COMPANY-12649786

PATIENT
  Sex: Female
  Weight: 54 kg

DRUGS (12)
  1. SERZONE [Suspect]
     Indication: DEPRESSION
     Dosage: DOSAGE VARIED, RECALLED ONLY 800 MG TAKEN FOR A FEW YEARS.
     Route: 048
     Dates: start: 19940101
  2. PROTONIX [Concomitant]
  3. NEURONTIN [Concomitant]
  4. ALPRAZOLAM [Concomitant]
  5. LORATADINE [Concomitant]
  6. CLARITIN [Concomitant]
  7. LEVOTHYROXINE [Concomitant]
  8. ADVAIR DISKUS 100/50 [Concomitant]
  9. FLONASE [Concomitant]
  10. ZOMAX [Concomitant]
  11. RISPERDAL [Concomitant]
  12. NULEV [Concomitant]

REACTIONS (6)
  - ANOREXIA [None]
  - BILE OUTPUT INCREASED [None]
  - DIARRHOEA [None]
  - MALABSORPTION [None]
  - MALAISE [None]
  - WEIGHT DECREASED [None]
